FAERS Safety Report 11646677 (Version 1)
Quarter: 2015Q4

REPORT INFORMATION
  Report Type: Spontaneous
  Country: US (occurrence: US)
  Receive Date: 20151020
  Receipt Date: 20151020
  Transmission Date: 20160304
  Serious: No
  Sender: FDA-Public Use
  Company Number: US-ROCHE-ITM201503IM011466

PATIENT
  Sex: Female
  Weight: 61.74 kg

DRUGS (3)
  1. ESBRIET [Suspect]
     Active Substance: PIRFENIDONE
     Route: 048
     Dates: start: 20150211
  2. PREDNISONE. [Concomitant]
     Active Substance: PREDNISONE
  3. ESBRIET [Suspect]
     Active Substance: PIRFENIDONE
     Indication: IDIOPATHIC PULMONARY FIBROSIS
     Route: 048
     Dates: start: 20150210

REACTIONS (5)
  - Fatigue [Recovering/Resolving]
  - Asthenia [Recovering/Resolving]
  - Hyperhidrosis [Recovering/Resolving]
  - Pneumonia [Unknown]
  - Fatigue [Unknown]
